FAERS Safety Report 8110906-8 (Version None)
Quarter: 2012Q1

REPORT INFORMATION
  Report Type: 
  Country: None (occurrence: None)
  Receive Date: 20120201
  Receipt Date: 20120201
  Transmission Date: 20120608
  Serious: Yes (Other)
  Sender: FDA-Public Use
  Company Number: None

PATIENT
  Sex: Female
  Weight: 78.4723 kg

DRUGS (3)
  1. PROTONIX [Suspect]
     Indication: GASTROOESOPHAGEAL REFLUX DISEASE
     Dosage: 40 MG 1 QD PO
     Route: 048
     Dates: start: 20120104, end: 20120130
  2. OMEPRAZOLE [Suspect]
     Indication: GASTROOESOPHAGEAL REFLUX DISEASE
     Dosage: 20MG 1 QD PO
     Route: 048
     Dates: start: 20110101
  3. PRILOSEC OTC [Suspect]
     Indication: BARRETT'S OESOPHAGUS
     Dosage: 20MG 1 BID PO
     Route: 048
     Dates: start: 20110101

REACTIONS (5)
  - CONDITION AGGRAVATED [None]
  - NAUSEA [None]
  - DYSPEPSIA [None]
  - TREATMENT FAILURE [None]
  - ABDOMINAL PAIN [None]
